FAERS Safety Report 9345471 (Version 2)
Quarter: 2013Q2

REPORT INFORMATION
  Report Type: Spontaneous
  Country: US (occurrence: US)
  Receive Date: 20130613
  Receipt Date: 20130624
  Transmission Date: 20140414
  Serious: No
  Sender: FDA-Public Use
  Company Number: US-009507513-1306USA005001

PATIENT
  Age: 54 Year
  Sex: Male
  Weight: 81.63 kg

DRUGS (2)
  1. PEG-INTRON [Suspect]
     Indication: HEPATITIS C
     Dosage: REDIPEN 150 MCG/0.5 ML 4SYR/PACK
     Route: 058
     Dates: start: 20130531
  2. RIBAVIRIN [Suspect]
     Indication: HEPATITIS C
     Dosage: RIBATAB (1200/DAY)
     Route: 048

REACTIONS (7)
  - Feeling jittery [Unknown]
  - Dysgeusia [Unknown]
  - Asthenia [Unknown]
  - Influenza like illness [Unknown]
  - Headache [Unknown]
  - Nausea [Unknown]
  - Decreased appetite [Unknown]
